FAERS Safety Report 23338194 (Version 1)
Quarter: 2023Q4

REPORT INFORMATION
  Report Type: Spontaneous
  Country: US (occurrence: None)
  Receive Date: 20231223
  Receipt Date: 20231223
  Transmission Date: 20240109
  Serious: Yes (Hospitalization)
  Sender: FDA-Public Use
  Company Number: None

PATIENT
  Age: 69 Year
  Sex: Female

DRUGS (1)
  1. SUDAFED SINUS 12 HOUR PRESSURE PLUS PAIN [Suspect]
     Active Substance: NAPROXEN SODIUM\PSEUDOEPHEDRINE HYDROCHLORIDE
     Dosage: 1 TOT-TOTAL DAILY ORAL?
     Route: 048

REACTIONS (8)
  - Asthenia [None]
  - Memory impairment [None]
  - Pulse absent [None]
  - Endoscopy abnormal [None]
  - Polyp [None]
  - Chest pain [None]
  - Muscle spasms [None]
  - Blood potassium decreased [None]

NARRATIVE: CASE EVENT DATE: 20231023
